FAERS Safety Report 4724551-5 (Version None)
Quarter: 2005Q3

REPORT INFORMATION
  Report Type: 
  Country: None (occurrence: None)
  Receive Date: 20050719
  Receipt Date: 20050719
  Transmission Date: 20060218
  Serious: Yes (Other)
  Sender: FDA-Public Use
  Company Number: None

PATIENT
  Age: 10 Year
  Sex: Male
  Weight: 45.5 kg

DRUGS (2)
  1. ROCEPHIN [Suspect]
     Indication: LYME DISEASE
     Dosage: 2 GM IV QD
     Route: 042
     Dates: start: 20050707, end: 20050715
  2. ROCEPHIN [Suspect]
     Indication: MENINGITIS
     Dosage: 2 GM IV QD
     Route: 042
     Dates: start: 20050707, end: 20050715

REACTIONS (3)
  - ERYTHEMA [None]
  - PYREXIA [None]
  - RASH PRURITIC [None]
